FAERS Safety Report 11363019 (Version 2)
Quarter: 2016Q1

REPORT INFORMATION
  Report Type: Spontaneous
  Country: US (occurrence: US)
  Receive Date: 20150810
  Receipt Date: 20160219
  Transmission Date: 20160525
  Serious: Yes (Hospitalization, Other)
  Sender: FDA-Public Use
  Company Number: US-ABBVIE-15P-163-1441474-00

PATIENT
  Sex: Male

DRUGS (2)
  1. ANDROGEL [Suspect]
     Active Substance: TESTOSTERONE
     Indication: BLOOD TESTOSTERONE DECREASED
     Route: 065
     Dates: start: 20100507, end: 201304
  2. ANDROGEL [Suspect]
     Active Substance: TESTOSTERONE
     Indication: BLOOD TESTOSTERONE DECREASED
     Route: 065
     Dates: start: 20100507, end: 201304

REACTIONS (7)
  - Emotional distress [Unknown]
  - Pain [Unknown]
  - Myocardial infarction [Recovering/Resolving]
  - Cerebrovascular accident [Unknown]
  - Economic problem [Unknown]
  - Injury [Unknown]
  - Thrombosis [Unknown]

NARRATIVE: CASE EVENT DATE: 20121228
